FAERS Safety Report 5657155-0 (Version None)
Quarter: 2008Q1

REPORT INFORMATION
  Report Type: 
  Country: None (occurrence: None)
  Receive Date: 20080310
  Receipt Date: 20080228
  Transmission Date: 20080703
  Serious: Yes (Death, Hospitalization)
  Sender: FDA-Public Use
  Company Number: JP-JNJFOC-20071006017

PATIENT
  Sex: Male
  Weight: 9.29 kg

DRUGS (27)
  1. REMICADE [Suspect]
     Indication: GRAFT VERSUS HOST DISEASE
     Route: 042
  2. PROTOPIC [Suspect]
     Indication: DRUG USE FOR UNKNOWN INDICATION
     Route: 048
  3. PREDONINE [Suspect]
     Indication: DRUG USE FOR UNKNOWN INDICATION
     Route: 048
  4. NARCOTIC ANALGESICS [Suspect]
     Indication: DRUG USE FOR UNKNOWN INDICATION
  5. PROGRAF [Suspect]
     Indication: CHRONIC GRAFT VERSUS HOST DISEASE
     Route: 048
  6. CELLCEPT [Suspect]
     Indication: CHRONIC GRAFT VERSUS HOST DISEASE
     Route: 048
  7. SOLU-MEDROL [Suspect]
     Indication: CHRONIC GRAFT VERSUS HOST DISEASE
  8. TRANILAST [Concomitant]
  9. MYCOPHENOLATE MOFETIL [Concomitant]
     Route: 048
  10. THALIDOMIDE [Concomitant]
  11. ACTIVE VIA [Concomitant]
  12. MEDICAL OXYGEN [Concomitant]
  13. OCTREOTIDE ACETATE [Concomitant]
  14. BAKTAR [Concomitant]
     Indication: ANTIFUNGAL PROPHYLAXIS
     Route: 048
  15. FUNGIZONE [Concomitant]
     Indication: ANTIFUNGAL PROPHYLAXIS
     Route: 048
  16. FAMOTIDINE [Concomitant]
     Indication: PROPHYLAXIS AGAINST GASTROINTESTINAL ULCER
  17. LOPEMIN [Concomitant]
     Indication: DIARRHOEA
     Route: 048
  18. BIOFERMIN R [Concomitant]
     Indication: DIARRHOEA
     Route: 048
  19. TIGASON [Concomitant]
     Indication: CHRONIC GRAFT VERSUS HOST DISEASE
     Route: 048
  20. VALTREX [Concomitant]
     Indication: ANTIVIRAL PROPHYLAXIS
     Route: 048
  21. INTRALIPID 10% [Concomitant]
     Indication: MEDICAL DIET
     Route: 048
  22. SANDOSTATIN [Concomitant]
     Indication: DIARRHOEA
     Route: 048
  23. PROTEAMIN [Concomitant]
     Indication: MEDICAL DIET
  24. CODEINE SUL TAB [Concomitant]
     Indication: ANTITUSSIVE THERAPY
     Route: 048
  25. VENETLIN [Concomitant]
     Route: 055
  26. ALEVAIRE [Concomitant]
  27. MEROPEN [Concomitant]

REACTIONS (7)
  - CYTOMEGALOVIRUS INFECTION [None]
  - DISSEMINATED INTRAVASCULAR COAGULATION [None]
  - FUNGAL INFECTION [None]
  - HEPATOMEGALY [None]
  - HISTIOCYTOSIS HAEMATOPHAGIC [None]
  - PANCREATITIS ACUTE [None]
  - RESPIRATORY FAILURE [None]
